FAERS Safety Report 12106546 (Version 6)
Quarter: 2017Q1

REPORT INFORMATION
  Report Type: Report from Study
  Country: None (occurrence: TR)
  Receive Date: 20160223
  Receipt Date: 20170221
  Transmission Date: 20170428
  Serious: Yes (Hospitalization)
  Sender: FDA-Public Use
  Company Number: TR-ABBVIE-16P-161-1563977-00

PATIENT
  Age: 79 Year
  Sex: Female
  Weight: 53 kg

DRUGS (7)
  1. LUSTRAL [Concomitant]
     Active Substance: SERTRALINE HYDROCHLORIDE
     Indication: ANTIDEPRESSANT THERAPY
     Route: 050
  2. NUTRISION PEPTISORB [Concomitant]
     Indication: DYSPHAGIA
     Route: 050
     Dates: start: 20151229
  3. DUODOPA [Suspect]
     Active Substance: CARBIDOPA\LEVODOPA
     Indication: PARKINSON^S DISEASE
     Dosage: MD: 4.8ML, CD: 1.2 ML, ED: 1.2ML
     Route: 050
     Dates: start: 20141216
  4. KAPRIL [Concomitant]
     Indication: HYPERTENSION
     Route: 060
     Dates: start: 20151122
  5. MOTILIUM [Concomitant]
     Active Substance: DOMPERIDONE
     Indication: NAUSEA
     Route: 050
  6. BITERAL [Concomitant]
     Indication: GASTROINTESTINAL INFECTION
     Route: 050
     Dates: start: 20160108
  7. DEPAKIN [Concomitant]
     Active Substance: VALPROATE SODIUM
     Indication: EPILEPSY
     Route: 050
     Dates: start: 201511

REACTIONS (5)
  - Pain in extremity [Recovered/Resolved]
  - Cervicobrachial syndrome [Not Recovered/Not Resolved]
  - Oedema peripheral [Recovered/Resolved]
  - Erythema [Recovered/Resolved]
  - Articular calcification [Recovered/Resolved]

NARRATIVE: CASE EVENT DATE: 201601
